FAERS Safety Report 16925360 (Version 1)
Quarter: 2019Q4

REPORT INFORMATION
  Report Type: Spontaneous
  Country: US (occurrence: US)
  Receive Date: 20191016
  Receipt Date: 20191016
  Transmission Date: 20200122
  Serious: No
  Sender: FDA-Public Use
  Company Number: US-GLAXOSMITHKLINE-US2019AMR182425

PATIENT
  Age: 65 Year
  Sex: Female

DRUGS (1)
  1. NUCALA [Suspect]
     Active Substance: MEPOLIZUMAB
     Indication: PRODUCT USED FOR UNKNOWN INDICATION
     Dosage: 100 MG, CYC
     Route: 058
     Dates: start: 20190910

REACTIONS (9)
  - Back pain [Not Recovered/Not Resolved]
  - Vision blurred [Unknown]
  - Visual impairment [Unknown]
  - Fatigue [Recovering/Resolving]
  - Adverse drug reaction [Unknown]
  - Neck pain [Not Recovered/Not Resolved]
  - Headache [Not Recovered/Not Resolved]
  - Musculoskeletal pain [Not Recovered/Not Resolved]
  - Migraine [Unknown]

NARRATIVE: CASE EVENT DATE: 201909
